FAERS Safety Report 21311513 (Version 3)
Quarter: 2023Q1

REPORT INFORMATION
  Report Type: Report from Study
  Country: IT (occurrence: IT)
  Receive Date: 20220909
  Receipt Date: 20230210
  Transmission Date: 20230418
  Serious: Yes (Death, Other)
  Sender: FDA-Public Use
  Company Number: IT-NOVARTISPH-NVSC2022IT201027

PATIENT
  Age: 72 Year
  Sex: Male
  Weight: 50 kg

DRUGS (1)
  1. LUTETIUM LU-177 VIPIVOTIDE TETRAXETAN [Suspect]
     Active Substance: LUTETIUM LU-177 VIPIVOTIDE TETRAXETAN
     Indication: Hormone-refractory prostate cancer
     Dosage: 200 MCI
     Route: 042
     Dates: start: 20220622

REACTIONS (3)
  - Bone marrow infiltration [Fatal]
  - Hormone-refractory prostate cancer [Fatal]
  - Malignant neoplasm progression [Fatal]
